FAERS Safety Report 8361620-5 (Version None)
Quarter: 2012Q2

REPORT INFORMATION
  Report Type: 
  Country: None (occurrence: None)
  Receive Date: 20120514
  Receipt Date: 20120416
  Transmission Date: 20120825
  Serious: Yes (Life-Threatening, Hospitalization, Other)
  Sender: FDA-Public Use
  Company Number: 54973 AE #846

PATIENT
  Age: 80 Year
  Sex: Female

DRUGS (1)
  1. HYLAND'S CALMS FORTE TABLETS [Suspect]
     Indication: INSOMNIA
     Dosage: 3 TABS @ NIGHT AS NEEDED

REACTIONS (5)
  - PAIN [None]
  - PRURITUS [None]
  - MYOCARDIAL INFARCTION [None]
  - CYSTITIS [None]
  - CHILLS [None]
